FAERS Safety Report 23551828 (Version 2)
Quarter: 2024Q1

REPORT INFORMATION
  Report Type: Report from Study
  Country: US (occurrence: US)
  Receive Date: 20240222
  Receipt Date: 20240227
  Transmission Date: 20240409
  Serious: Yes (Hospitalization)
  Sender: FDA-Public Use
  Company Number: US-ABBVIE-5647004

PATIENT
  Sex: Female

DRUGS (3)
  1. VENCLEXTA [Suspect]
     Active Substance: VENETOCLAX
     Indication: Acute myeloid leukaemia
     Route: 048
     Dates: start: 20231113
  2. PANADOL [Concomitant]
     Active Substance: ACETAMINOPHEN
     Indication: Product used for unknown indication
     Dosage: EXTRA STRENGTH 500MG
     Route: 048
     Dates: start: 20240207
  3. SIMVASTATIN [Concomitant]
     Active Substance: SIMVASTATIN
     Indication: Product used for unknown indication
     Dosage: 20 MG
     Route: 048
     Dates: start: 20240207

REACTIONS (7)
  - Gingival bleeding [Not Recovered/Not Resolved]
  - Haemoglobin decreased [Not Recovered/Not Resolved]
  - Epistaxis [Not Recovered/Not Resolved]
  - Weight decreased [Not Recovered/Not Resolved]
  - Hypophagia [Not Recovered/Not Resolved]
  - Platelet count decreased [Not Recovered/Not Resolved]
  - Heart rate increased [Not Recovered/Not Resolved]
